FAERS Safety Report 21199182 (Version 4)
Quarter: 2023Q1

REPORT INFORMATION
  Report Type: Spontaneous
  Country: JP (occurrence: JP)
  Receive Date: 20220811
  Receipt Date: 20230127
  Transmission Date: 20230418
  Serious: Yes (Hospitalization, Other)
  Sender: FDA-Public Use
  Company Number: JP-MSD-M2022-32887

PATIENT
  Sex: Female

DRUGS (2)
  1. KEYTRUDA [Suspect]
     Active Substance: PEMBROLIZUMAB
     Indication: Uterine cancer
     Dosage: 200 MILLIGRAM, Q3W
     Route: 041
     Dates: start: 20220214, end: 2022
  2. LENVATINIB MESYLATE [Suspect]
     Active Substance: LENVATINIB MESYLATE
     Indication: Uterine cancer
     Dosage: 24 MILLIGRAM, QD
     Route: 048
     Dates: start: 20220214, end: 2022

REACTIONS (4)
  - Renal impairment [Recovered/Resolved]
  - Gastrointestinal perforation [Recovered/Resolved]
  - Fistula [Recovered/Resolved]
  - Lymphocele [Unknown]

NARRATIVE: CASE EVENT DATE: 20220101
